FAERS Safety Report 14670909 (Version 1)
Quarter: 2018Q1

REPORT INFORMATION
  Report Type: Spontaneous
  Country: US (occurrence: US)
  Receive Date: 20180322
  Receipt Date: 20180322
  Transmission Date: 20180509
  Serious: No
  Sender: FDA-Public Use
  Company Number: US-GILEAD-2018-0328423

PATIENT
  Age: 49 Year
  Sex: Female

DRUGS (2)
  1. EPCLUSA [Suspect]
     Active Substance: SOFOSBUVIR\VELPATASVIR
     Indication: PRODUCT USED FOR UNKNOWN INDICATION
     Dosage: BID
     Route: 065
     Dates: start: 20180312, end: 20180317
  2. EPCLUSA [Suspect]
     Active Substance: SOFOSBUVIR\VELPATASVIR
     Dosage: 1 DF, QD
     Route: 065

REACTIONS (4)
  - Chills [Unknown]
  - Pain [Unknown]
  - Accidental overdose [Unknown]
  - Headache [Unknown]

NARRATIVE: CASE EVENT DATE: 20180312
